FAERS Safety Report 13958737 (Version 1)
Quarter: 2017Q3

REPORT INFORMATION
  Report Type: Spontaneous
  Country: US (occurrence: US)
  Receive Date: 20170912
  Receipt Date: 20170912
  Transmission Date: 20171128
  Serious: Yes (Other)
  Sender: FDA-Public Use
  Company Number: US-DRREDDYS-USA/USA/17/0093290

PATIENT
  Age: 11 Year
  Sex: Male

DRUGS (14)
  1. CISPLATIN. [Suspect]
     Active Substance: CISPLATIN
     Indication: HEPATOBLASTOMA
     Route: 065
  2. IRINOTECAN [Suspect]
     Active Substance: IRINOTECAN
     Indication: HEPATOBLASTOMA
     Route: 065
  3. DOXORUBICIN HYDROCHLORIDE LIPOSOME INJECTION 20 MG/10 ML (2 MG/ML) AND [Suspect]
     Active Substance: DOXORUBICIN HYDROCHLORIDE
     Indication: HEPATOBLASTOMA
     Route: 065
  4. 5-FLUOROURACIL [Suspect]
     Active Substance: FLUOROURACIL
     Indication: HEPATOBLASTOMA
     Route: 065
  5. DOCETAXEL. [Suspect]
     Active Substance: DOCETAXEL
     Indication: HEPATOBLASTOMA
     Route: 042
  6. BEVACIZUMAB. [Suspect]
     Active Substance: BEVACIZUMAB
     Indication: HEPATOBLASTOMA
     Route: 065
  7. VINCRISTINE [Suspect]
     Active Substance: VINCRISTINE
     Indication: HEPATOBLASTOMA
     Route: 065
  8. TEMOZOLOMIDE. [Suspect]
     Active Substance: TEMOZOLOMIDE
     Indication: HEPATOBLASTOMA
     Route: 065
  9. SIROLIMUS. [Suspect]
     Active Substance: SIROLIMUS
     Indication: IMMUNOSUPPRESSANT DRUG THERAPY
     Route: 065
  10. OXALIPLATIN. [Suspect]
     Active Substance: OXALIPLATIN
     Indication: HEPATOBLASTOMA
     Route: 042
  11. TACROLIMUS. [Suspect]
     Active Substance: TACROLIMUS
     Indication: IMMUNOSUPPRESSANT DRUG THERAPY
     Route: 065
  12. GEMCITABINE [Suspect]
     Active Substance: GEMCITABINE\GEMCITABINE HYDROCHLORIDE
     Indication: HEPATOBLASTOMA
     Route: 042
  13. IRINOTECAN [Suspect]
     Active Substance: IRINOTECAN
     Route: 048
  14. SORAFENIB [Suspect]
     Active Substance: SORAFENIB
     Indication: HEPATOBLASTOMA
     Route: 065

REACTIONS (8)
  - Metastases to lung [Recovering/Resolving]
  - Alpha 1 foetoprotein increased [Recovering/Resolving]
  - Disease progression [Recovering/Resolving]
  - Cutaneous symptom [Unknown]
  - Renal impairment [Unknown]
  - Gastrointestinal toxicity [Recovering/Resolving]
  - Hepatic lesion [Unknown]
  - Drug intolerance [Unknown]
